FAERS Safety Report 14343114 (Version 3)
Quarter: 2018Q1

REPORT INFORMATION
  Report Type: Report from Study
  Country: US (occurrence: US)
  Receive Date: 20180102
  Receipt Date: 20180208
  Transmission Date: 20180509
  Serious: Yes (Hospitalization, Other)
  Sender: FDA-Public Use
  Company Number: US-JNJFOC-20171029881

PATIENT
  Sex: Female

DRUGS (19)
  1. LEXAPRO [Concomitant]
     Active Substance: ESCITALOPRAM OXALATE
  2. TEMAZEPAM. [Concomitant]
     Active Substance: TEMAZEPAM
  3. OXYCODONE [Concomitant]
     Active Substance: OXYCODONE
  4. IMBRUVICA [Suspect]
     Active Substance: IBRUTINIB
     Indication: WALDENSTROM^S MACROGLOBULINAEMIA
     Route: 048
     Dates: start: 20171016, end: 20180128
  5. ASPIRIN. [Concomitant]
     Active Substance: ASPIRIN
  6. PHENYTOIN. [Concomitant]
     Active Substance: PHENYTOIN
  7. IMBRUVICA [Suspect]
     Active Substance: IBRUTINIB
     Indication: WALDENSTROM^S MACROGLOBULINAEMIA
     Route: 048
     Dates: start: 20171009
  8. NORVASC [Concomitant]
     Active Substance: AMLODIPINE BESYLATE
  9. ATORVASTATIN CALCIUM. [Concomitant]
     Active Substance: ATORVASTATIN CALCIUM
  10. ZOFRAN [Suspect]
     Active Substance: ONDANSETRON HYDROCHLORIDE
     Indication: NAUSEA
     Route: 065
  11. AMITRIPTYLINE [Concomitant]
     Active Substance: AMITRIPTYLINE
  12. DEXTROMETHORPHAN [Concomitant]
     Active Substance: DEXTROMETHORPHAN
  13. WARFARIN [Concomitant]
     Active Substance: WARFARIN
  14. XANAX [Concomitant]
     Active Substance: ALPRAZOLAM
  15. MIRTAZAPINE. [Concomitant]
     Active Substance: MIRTAZAPINE
  16. IMBRUVICA [Suspect]
     Active Substance: IBRUTINIB
     Indication: WALDENSTROM^S MACROGLOBULINAEMIA
     Route: 048
     Dates: start: 20171010
  17. TOPROL XL [Concomitant]
     Active Substance: METOPROLOL SUCCINATE
  18. DRAMAMINE [Concomitant]
     Active Substance: DIMENHYDRINATE
  19. CHLORPHENIRAMINE. [Concomitant]
     Active Substance: CHLORPHENIRAMINE

REACTIONS (16)
  - Headache [Unknown]
  - Nausea [Unknown]
  - Blood immunoglobulin M decreased [Unknown]
  - Epistaxis [Unknown]
  - Back pain [Not Recovered/Not Resolved]
  - Contusion [Recovering/Resolving]
  - Cerebrovascular accident [Unknown]
  - Musculoskeletal pain [Not Recovered/Not Resolved]
  - Constipation [Not Recovered/Not Resolved]
  - Claustrophobia [Unknown]
  - Pollakiuria [Unknown]
  - Neck pain [Unknown]
  - Intestinal obstruction [Unknown]
  - Atrial fibrillation [Unknown]
  - Drug dose omission [Unknown]
  - Anxiety [Not Recovered/Not Resolved]

NARRATIVE: CASE EVENT DATE: 2017
